FAERS Safety Report 19299196 (Version 4)
Quarter: 2022Q3

REPORT INFORMATION
  Report Type: Spontaneous
  Country: DE (occurrence: DE)
  Receive Date: 20210524
  Receipt Date: 20220802
  Transmission Date: 20221026
  Serious: Yes (Congenital Anomaly, Other)
  Sender: FDA-Public Use
  Company Number: None

PATIENT
  Age: 13 Month
  Sex: Male
  Weight: 12 kg

DRUGS (1)
  1. CYTOTEC [Suspect]
     Active Substance: MISOPROSTOL
     Indication: Labour induction
     Route: 064
     Dates: start: 20200319, end: 20200320

REACTIONS (2)
  - Foetal exposure during delivery [Recovered/Resolved with Sequelae]
  - Cortical dysplasia [Recovered/Resolved with Sequelae]

NARRATIVE: CASE EVENT DATE: 20200319
